FAERS Safety Report 11205908 (Version 1)
Quarter: 2015Q2

REPORT INFORMATION
  Report Type: Spontaneous
  Country: US (occurrence: None)
  Receive Date: 20150618
  Receipt Date: 20150618
  Transmission Date: 20150821
  Serious: Yes (Hospitalization)
  Sender: FDA-Public Use
  Company Number: None

PATIENT
  Age: 25 Year
  Sex: Female
  Weight: 44.91 kg

DRUGS (7)
  1. BYSTOLIC NEBIVOLOL [Concomitant]
  2. MIRTAZAPINE. [Concomitant]
     Active Substance: MIRTAZAPINE
  3. ALAPRAZOLAM [Concomitant]
     Active Substance: ALPRAZOLAM
  4. DULOXETINE [Concomitant]
     Active Substance: DULOXETINE
  5. APETAMIN CYPROHEPTADINE LYSINE VITAMINS SYRUP [Suspect]
     Active Substance: CYPROHEPTADINE
     Indication: WEIGHT INCREASED
     Dosage: 200 ML?I TOOK 5ML EVERY DAY?5 ML 3 TIMES A DAY ?MONTH
     Route: 048
     Dates: start: 20150423, end: 20150430
  6. VALIUM DIAZEPAM [Concomitant]
  7. BUSPIRONE [Concomitant]
     Active Substance: BUSPIRONE HYDROCHLORIDE

REACTIONS (10)
  - Muscular weakness [None]
  - Diarrhoea [None]
  - Nausea [None]
  - Palpitations [None]
  - Dizziness [None]
  - Anxiety [None]
  - Tremor [None]
  - Tachycardia [None]
  - Nervousness [None]
  - Hypotension [None]

NARRATIVE: CASE EVENT DATE: 20150501
